FAERS Safety Report 11979660 (Version 1)
Quarter: 2016Q1

REPORT INFORMATION
  Report Type: Spontaneous
  Country: CA (occurrence: CA)
  Receive Date: 20160129
  Receipt Date: 20160129
  Transmission Date: 20160526
  Serious: Yes (Hospitalization)
  Sender: FDA-Public Use
  Company Number: CA-SA-2015SA112993

PATIENT
  Age: 69 Year
  Sex: Female
  Weight: 54 kg

DRUGS (5)
  1. FLUOROURACIL. [Concomitant]
     Active Substance: FLUOROURACIL
     Route: 040
     Dates: start: 20140929, end: 20140929
  2. ELOXATIN [Suspect]
     Active Substance: OXALIPLATIN
     Indication: COLON CANCER METASTATIC
     Route: 042
     Dates: start: 20140929, end: 20140929
  3. AVASTIN [Concomitant]
     Active Substance: BEVACIZUMAB
     Dosage: SOLUTION
     Route: 042
     Dates: start: 20140929, end: 20140929
  4. FLUOROURACIL. [Concomitant]
     Active Substance: FLUOROURACIL
     Dosage: 46 HRS
     Route: 042
     Dates: start: 20140929, end: 20140929
  5. LEUCOVORIN. [Concomitant]
     Active Substance: LEUCOVORIN
     Dates: start: 20140929, end: 20140929

REACTIONS (2)
  - Amylase increased [Unknown]
  - Lipase increased [Unknown]

NARRATIVE: CASE EVENT DATE: 20141002
